FAERS Safety Report 4756022-4 (Version None)
Quarter: 2005Q3

REPORT INFORMATION
  Report Type: 
  Country: None (occurrence: None)
  Receive Date: 20050830
  Receipt Date: 20050809
  Transmission Date: 20060218
  Serious: Yes (Hospitalization, Other)
  Sender: FDA-Public Use
  Company Number: IL-NOVOPROD-246332

PATIENT
  Age: 17 Year
  Sex: Female
  Weight: 59 kg

DRUGS (1)
  1. NOVOMIX 30 FLEXPEN [Suspect]
     Indication: DIABETES MELLITUS INSULIN-DEPENDENT
     Dosage: 36 IU, UNK
     Dates: start: 20050717, end: 20050701

REACTIONS (4)
  - ABDOMINAL PAIN [None]
  - DIABETES MELLITUS INADEQUATE CONTROL [None]
  - TACHYCARDIA [None]
  - VOMITING [None]
